FAERS Safety Report 8372055-3 (Version None)
Quarter: 2012Q2

REPORT INFORMATION
  Report Type: 
  Country: None (occurrence: None)
  Receive Date: 20120520
  Receipt Date: 20120423
  Transmission Date: 20120825
  Serious: Yes (Hospitalization)
  Sender: FDA-Public Use
  Company Number: PHHY2012KR002440

PATIENT
  Sex: Female
  Weight: 55 kg

DRUGS (2)
  1. EXJADE [Suspect]
     Indication: APLASTIC ANAEMIA
     Dosage: 20 MG/KG, UNK
     Route: 048
     Dates: start: 20070901, end: 20090428
  2. NEORAL [Concomitant]

REACTIONS (6)
  - LOSS OF CONSCIOUSNESS [None]
  - DIZZINESS [None]
  - HAEMOGLOBIN DECREASED [None]
  - VOMITING [None]
  - DIARRHOEA [None]
  - NAUSEA [None]
